FAERS Safety Report 7691298 (Version 1)
Quarter: 2020Q3

REPORT INFORMATION
  Report Type: Report from Study
  Country: US (occurrence: US)
  Receive Date: 20101203
  Receipt Date: 20101203
  Transmission Date: 20201104
  Serious: Yes (Hospitalization)
  Sender: FDA-Public Use
  Company Number: US-ROCHE-745446

PATIENT
  Sex: Female

DRUGS (1)
  1. IBANDRONIC ACID. [Suspect]
     Active Substance: IBANDRONIC ACID
     Route: 065

REACTIONS (6)
  - Pain [Unknown]
  - Muscle spasms [Unknown]
  - Dysstasia [None]
  - Arthropathy [Unknown]
  - Musculoskeletal chest pain [Unknown]
  - Refusal of treatment by patient [None]
